FAERS Safety Report 24369627 (Version 1)
Quarter: 2024Q3

REPORT INFORMATION
  Report Type: Spontaneous
  Country: US (occurrence: US)
  Receive Date: 20240927
  Receipt Date: 20240927
  Transmission Date: 20241017
  Serious: Yes (Other)
  Sender: NOVARTIS
  Company Number: US-002147023-NVSC2024US191656

PATIENT
  Age: 21 Year
  Sex: Female

DRUGS (1)
  1. KYMRIAH [Suspect]
     Active Substance: TISAGENLECLEUCEL
     Indication: Non-Hodgkin^s lymphoma
     Dosage: UNK, ONCE/SINGLE
     Route: 042
     Dates: start: 20240903, end: 20240903

REACTIONS (2)
  - Cytopenia [Recovering/Resolving]
  - Constipation [Unknown]
